FAERS Safety Report 9183982 (Version 1)
Quarter: 2013Q1

REPORT INFORMATION
  Report Type: Spontaneous
  Country: US (occurrence: US)
  Receive Date: 20130322
  Receipt Date: 20130322
  Transmission Date: 20140127
  Serious: No
  Sender: FDA-Public Use
  Company Number: US-BRISTOL-MYERS SQUIBB COMPANY-16683799

PATIENT
  Age: 61 Year
  Sex: Male

DRUGS (4)
  1. ERBITUX [Suspect]
     Indication: COLON CANCER
     Dosage: RESTARTED IN MAY12
     Dates: start: 201111
  2. FOLINIC ACID [Suspect]
     Indication: COLON CANCER
  3. 5-FLUOROURACIL [Suspect]
     Indication: COLON CANCER
  4. IRINOTECAN [Suspect]
     Indication: COLON CANCER

REACTIONS (2)
  - Rash [Unknown]
  - Weight decreased [Unknown]
